FAERS Safety Report 7720294-4 (Version None)
Quarter: 2011Q3

REPORT INFORMATION
  Report Type: 
  Country: None (occurrence: None)
  Receive Date: 20110831
  Receipt Date: 20110817
  Transmission Date: 20111222
  Serious: Yes (Hospitalization, Disabling, Other)
  Sender: FDA-Public Use
  Company Number: US-CELGENEUS-163-21880-11012261

PATIENT
  Sex: Male
  Weight: 126 kg

DRUGS (35)
  1. AREDIA [Concomitant]
     Dosage: 60 MILLIGRAM
     Route: 041
  2. FLUID [Concomitant]
     Route: 041
  3. VELCADE [Concomitant]
     Route: 065
  4. FISH OIL [Concomitant]
     Dosage: 3 TABLET
     Route: 065
  5. VITAMIN B6 [Concomitant]
     Dosage: 50 MILLIGRAM
     Route: 048
  6. OXYCODONE/ACETAMINOPHEN [Concomitant]
     Dosage: 5 MILLIGRAM
     Route: 048
     Dates: start: 20100108
  7. FUROSEMIDE [Concomitant]
     Dosage: 20 MILLIGRAM
     Route: 048
     Dates: start: 20110113
  8. DECADRON [Concomitant]
     Dosage: 20 MILLIGRAM
     Route: 041
     Dates: start: 20090501
  9. ALBUTEROL SULFATE [Concomitant]
     Route: 055
     Dates: start: 20100817
  10. PAMIDRONATE DISODIUM [Concomitant]
     Route: 065
  11. REVLIMID [Suspect]
     Indication: MULTIPLE MYELOMA
     Dosage: 25 MILLIGRAM
     Route: 048
     Dates: start: 20101201
  12. ZOMETA [Concomitant]
     Dosage: 4 MILLIGRAM
     Route: 065
  13. COLACE [Concomitant]
     Dosage: 100 MILLIGRAM
     Route: 048
  14. GAS-X [Concomitant]
     Route: 048
  15. AUGMENTIN '125' [Concomitant]
     Dosage: 875 MILLIGRAM
     Route: 065
  16. DOXIL [Concomitant]
     Route: 065
     Dates: end: 20100803
  17. ATIVAN [Concomitant]
     Dosage: 1 MILLIGRAM
     Route: 065
     Dates: start: 20090421
  18. TRAZODONE HCL [Concomitant]
     Dosage: 150 MILLIGRAM
     Route: 048
     Dates: start: 20100107
  19. PERCOCET [Concomitant]
     Dosage: 5/325MG
     Route: 065
  20. DECADRON [Concomitant]
     Dosage: 8 MILLIGRAM
     Route: 041
     Dates: start: 20090901
  21. ZOMETA [Concomitant]
     Dosage: 3 MILLIGRAM
     Route: 065
  22. MIRALAX [Concomitant]
     Route: 065
  23. REVLIMID [Suspect]
     Dosage: 15 MILLIGRAM
     Route: 048
     Dates: start: 20110120, end: 20110207
  24. ALDACTONE [Concomitant]
     Dosage: 50 MILLIGRAM
     Route: 065
  25. FLUVIRIN [Concomitant]
     Dosage: .5 MILLILITER
     Route: 030
     Dates: start: 20100916, end: 20100916
  26. DECADRON [Concomitant]
     Dosage: X4
     Route: 041
  27. DECADRON [Concomitant]
     Dosage: 4 MILLIGRAM
     Route: 048
     Dates: start: 20091222
  28. CALCIUM CARBONATE [Concomitant]
     Dosage: 600 MILLIGRAM
     Route: 048
  29. ASPIRIN [Concomitant]
     Route: 065
  30. MOMETASONE FUROATE [Concomitant]
     Dosage: 2
     Route: 055
     Dates: start: 20110210
  31. DECADRON [Concomitant]
     Dosage: 40 MILLIGRAM
     Route: 065
  32. MIRALAX [Concomitant]
     Dosage: 17 GRAM
     Route: 048
  33. PRILOSEC [Concomitant]
     Dosage: 20 MILLIGRAM
     Route: 065
     Dates: start: 20100107
  34. OMEGA-3 FATTY ACIDS-VITAMIN E [Concomitant]
     Dosage: 1000 MILLIGRAM
     Route: 048
     Dates: start: 20101013
  35. WARFARIN SODIUM [Concomitant]
     Dosage: 2 MILLIGRAM
     Route: 048
     Dates: start: 20110211

REACTIONS (5)
  - FATIGUE [None]
  - DYSPNOEA [None]
  - TRANSITIONAL CELL CARCINOMA [None]
  - MUSCLE SPASMS [None]
  - PNEUMONIA [None]
